FAERS Safety Report 5734569-1 (Version None)
Quarter: 2008Q2

REPORT INFORMATION
  Report Type: 
  Country: None (occurrence: None)
  Receive Date: 20080508
  Receipt Date: 20080429
  Transmission Date: 20081010
  Serious: Yes (Hospitalization)
  Sender: FDA-Public Use
  Company Number: 230443K07USA

PATIENT
  Age: 37 Year
  Sex: Female
  Weight: 77.1115 kg

DRUGS (5)
  1. REBIF [Suspect]
     Indication: MULTIPLE SCLEROSIS
     Dosage: 44 MCG, 3 IN 1 WEEKS, SUBCUTANEOUS
     Route: 058
     Dates: start: 20060527
  2. LORTAB [Concomitant]
  3. LEXAPRO [Concomitant]
  4. KLONOPIN [Concomitant]
  5. MUSCLE RELAXANTS [Concomitant]

REACTIONS (6)
  - GRAND MAL CONVULSION [None]
  - LOSS OF CONSCIOUSNESS [None]
  - MOUTH INJURY [None]
  - MUSCLE TWITCHING [None]
  - PERIORBITAL HAEMATOMA [None]
  - VISION BLURRED [None]
